FAERS Safety Report 5234698-5 (Version None)
Quarter: 2007Q1

REPORT INFORMATION
  Report Type: 
  Country: None (occurrence: None)
  Receive Date: 20070209
  Receipt Date: 20070201
  Transmission Date: 20070707
  Serious: Yes (Other)
  Sender: FDA-Public Use
  Company Number: CH-ABBOTT-06P-151-0346592-00

PATIENT
  Age: 56 Year
  Sex: Female

DRUGS (10)
  1. KALETRA [Suspect]
     Indication: HIV INFECTION
     Dosage: 800MG/200MG
     Dates: start: 20060701
  2. DEPAKENE [Concomitant]
     Indication: DRUG USE FOR UNKNOWN INDICATION
     Dates: start: 20060701
  3. NOVASOURCE GI FORTE [Concomitant]
     Indication: DRUG USE FOR UNKNOWN INDICATION
     Dates: start: 20060701
  4. PYRIMETHAMINE TAB [Concomitant]
     Indication: TOXOPLASMOSIS
     Dates: start: 20060701
  5. FOLINIC ACID [Concomitant]
     Indication: DRUG USE FOR UNKNOWN INDICATION
     Dates: start: 20060701
  6. LAMIVUDINE [Concomitant]
     Indication: HIV INFECTION
     Dates: start: 20060701
  7. ABACAVIR SULFATE [Concomitant]
     Indication: HIV INFECTION
     Dates: start: 20060701
  8. CLINDAMYCIN HYDROCHLORIDE [Concomitant]
     Indication: TOXOPLASMOSIS
     Route: 042
     Dates: start: 20060701
  9. CLOBAZAM [Concomitant]
     Indication: NEUROLOGICAL SYMPTOM
     Dates: start: 20060701
  10. ENOXAPARIN SODIUM [Concomitant]
     Indication: DRUG USE FOR UNKNOWN INDICATION
     Route: 058
     Dates: start: 20060701

REACTIONS (1)
  - DRUG LEVEL DECREASED [None]
